FAERS Safety Report 24017177 (Version 1)
Quarter: 2024Q2

REPORT INFORMATION
  Report Type: Spontaneous
  Country: US (occurrence: US)
  Receive Date: 20240627
  Receipt Date: 20240627
  Transmission Date: 20240716
  Serious: Yes (Other)
  Sender: FDA-Public Use
  Company Number: US-BRISTOL-MYERS SQUIBB COMPANY-2024-098195

PATIENT
  Age: 34 Year
  Sex: Female

DRUGS (2)
  1. SPRYCEL [Suspect]
     Active Substance: DASATINIB
     Indication: Product used for unknown indication
  2. ASCIMINIB [Suspect]
     Active Substance: ASCIMINIB
     Indication: Product used for unknown indication

REACTIONS (10)
  - Gallbladder disorder [Unknown]
  - Fatigue [Unknown]
  - Arthralgia [Recovering/Resolving]
  - Back pain [Unknown]
  - Temperature regulation disorder [Not Recovered/Not Resolved]
  - Balance disorder [Unknown]
  - Hunger [Unknown]
  - Nasopharyngitis [Unknown]
  - Diarrhoea [Unknown]
  - Intestinal perforation [Unknown]
